FAERS Safety Report 14177243 (Version 2)
Quarter: 2017Q4

REPORT INFORMATION
  Report Type: Spontaneous
  Country: US (occurrence: US)
  Receive Date: 20171110
  Receipt Date: 20171221
  Transmission Date: 20180321
  Serious: No
  Sender: FDA-Public Use
  Company Number: US-PFIZER INC-2015323899

PATIENT
  Age: 1 Year
  Sex: Male
  Weight: 21 kg

DRUGS (1)
  1. GENOTROPIN [Suspect]
     Active Substance: SOMATROPIN
     Indication: GROWTH HORMONE DEFICIENCY
     Dosage: 5 MG, 1X/DAY
     Route: 030
     Dates: start: 201005

REACTIONS (4)
  - Incorrect route of drug administration [Unknown]
  - Drug dose omission [Unknown]
  - Device issue [Unknown]
  - Vomiting [Unknown]

NARRATIVE: CASE EVENT DATE: 201005
